FAERS Safety Report 25653242 (Version 1)
Quarter: 2025Q3

REPORT INFORMATION
  Report Type: Spontaneous
  Country: US (occurrence: US)
  Receive Date: 20250807
  Receipt Date: 20250807
  Transmission Date: 20251021
  Serious: No
  Sender: GLAXOSMITHKLINE
  Company Number: US-GSK-US2025AMR091356

PATIENT

DRUGS (5)
  1. BENLYSTA [Suspect]
     Active Substance: BELIMUMAB
     Indication: Systemic lupus erythematosus
  2. BENLYSTA [Suspect]
     Active Substance: BELIMUMAB
     Indication: Osteoarthritis
  3. BENLYSTA [Suspect]
     Active Substance: BELIMUMAB
     Indication: Diplopia
  4. BENLYSTA [Suspect]
     Active Substance: BELIMUMAB
     Indication: Dyspepsia
  5. BENLYSTA [Suspect]
     Active Substance: BELIMUMAB
     Indication: Tremor

REACTIONS (1)
  - Off label use [Unknown]
